FAERS Safety Report 8001124-2 (Version None)
Quarter: 2011Q4

REPORT INFORMATION
  Report Type: 
  Country: None (occurrence: None)
  Receive Date: 20111222
  Receipt Date: 20111219
  Transmission Date: 20120403
  Serious: No
  Sender: FDA-Public Use
  Company Number: US-BAYER-2011-122489

PATIENT
  Sex: Male

DRUGS (1)
  1. ULTRAVIST 150 [Suspect]
     Indication: PRODUCT USED FOR UNKNOWN INDICATION
     Dosage: 80 ML, ONCE
     Route: 042
     Dates: start: 20111205, end: 20111205

REACTIONS (2)
  - LIP SWELLING [None]
  - PRURITUS [None]
